FAERS Safety Report 5492287-1 (Version None)
Quarter: 2007Q4

REPORT INFORMATION
  Report Type: 
  Country: None (occurrence: None)
  Receive Date: 20071022
  Receipt Date: 20071009
  Transmission Date: 20080405
  Serious: Yes (Hospitalization)
  Sender: FDA-Public Use
  Company Number: FR-GILEAD-2007-0013766

PATIENT
  Sex: Male
  Weight: 53 kg

DRUGS (8)
  1. VIREAD [Suspect]
     Indication: HIV INFECTION
     Route: 048
     Dates: start: 20020301
  2. KALETRA [Suspect]
     Indication: HIV INFECTION
     Route: 048
     Dates: start: 20020301
  3. SUSTIVA [Suspect]
     Indication: HIV INFECTION
     Route: 048
     Dates: start: 20020301
  4. PLAQUENIL [Suspect]
  5. VIRLIX [Concomitant]
  6. TENORMIN [Concomitant]
  7. CORVASAL [Concomitant]
  8. ASPEGIC 325 [Concomitant]

REACTIONS (4)
  - BONE PAIN [None]
  - HYPOPHOSPHATAEMIA [None]
  - PAIN [None]
  - VITAMIN D DEFICIENCY [None]
